FAERS Safety Report 5087271-6 (Version None)
Quarter: 2006Q3

REPORT INFORMATION
  Report Type: 
  Country: None (occurrence: None)
  Receive Date: 20060801
  Receipt Date: 20050831
  Transmission Date: 20061208
  Serious: Yes (Hospitalization)
  Sender: FDA-Public Use
  Company Number: OMPQ-PR-0508S-1257

PATIENT
  Age: 68 Year
  Sex: Male
  Weight: 89.8122 kg

DRUGS (8)
  1. OMNIPAQUE 140 [Suspect]
     Indication: ANGINA PECTORIS
     Dosage: 30 ML, SINGLE DOSE, I.A.
     Route: 013
     Dates: start: 20050812, end: 20050812
  2. ASPIRIN [Concomitant]
  3. METOPROLOL TARTRATE [Concomitant]
  4. ZOCOR [Concomitant]
  5. PANTOPRAZOLE (PROTONIX) [Concomitant]
  6. FOLIC ACID [Concomitant]
  7. EZETIMIBEL (ZETIA) [Concomitant]
  8. LASIX [Concomitant]

REACTIONS (2)
  - MYOCARDIAL INFARCTION [None]
  - PRURITUS [None]
